FAERS Safety Report 4672883-1 (Version None)
Quarter: 2005Q2

REPORT INFORMATION
  Report Type: 
  Country: None (occurrence: None)
  Receive Date: 20050523
  Receipt Date: 20050509
  Transmission Date: 20051028
  Serious: Yes (Hospitalization, Other)
  Sender: FDA-Public Use
  Company Number: 2005060708

PATIENT
  Age: 49 Year
  Sex: Female
  Weight: 127.0072 kg

DRUGS (9)
  1. BEXTRA [Suspect]
     Indication: ARTHRITIS
     Dosage: 20 MG (20 MG, 1 IN 1 D) ORAL
     Route: 048
     Dates: start: 20030901
  2. TOPROL (METOPROLOL) [Concomitant]
  3. ALL OTHER THERAPEUTIC PRODUCTS [Concomitant]
  4. PLAVIX [Concomitant]
  5. NEXIUM [Concomitant]
  6. VASOTEC [Concomitant]
  7. HYDROCHLOROTHIAZIDE [Concomitant]
  8. ZOLOFT [Concomitant]
  9. ZOCOR [Concomitant]

REACTIONS (7)
  - ENDOMETRIOSIS [None]
  - MYOCARDIAL INFARCTION [None]
  - PLANTAR FASCIITIS [None]
  - SLEEP APNOEA SYNDROME [None]
  - VASCULAR RUPTURE [None]
  - WEIGHT INCREASED [None]
  - WEIGHT LOSS POOR [None]
